FAERS Safety Report 10188389 (Version 2)
Quarter: 2014Q3

REPORT INFORMATION
  Report Type: Spontaneous
  Country: FR (occurrence: FR)
  Receive Date: 20140522
  Receipt Date: 20140703
  Transmission Date: 20150326
  Serious: Yes (Other)
  Sender: FDA-Public Use
  Company Number: FR-JNJFOC-20140504805

PATIENT

DRUGS (3)
  1. METHYLPHENIDATE HYDROCHLORIDE. [Suspect]
     Active Substance: METHYLPHENIDATE HYDROCHLORIDE
     Indication: ATTENTION DEFICIT/HYPERACTIVITY DISORDER
     Route: 048
  2. RISPERIDONE. [Suspect]
     Active Substance: RISPERIDONE
     Indication: AUTISM SPECTRUM DISORDER
     Route: 048
  3. RISPERIDONE. [Suspect]
     Active Substance: RISPERIDONE
     Indication: ATTENTION DEFICIT/HYPERACTIVITY DISORDER
     Route: 048

REACTIONS (20)
  - Tachycardia [Unknown]
  - Somnambulism [Unknown]
  - Headache [Unknown]
  - Constipation [Unknown]
  - Tardive dyskinesia [Recovered/Resolved]
  - Stereotypy [Unknown]
  - Decreased appetite [Unknown]
  - Attention deficit/hyperactivity disorder [Unknown]
  - Weight decreased [Unknown]
  - Dry mouth [Unknown]
  - Enuresis [Unknown]
  - Weight increased [Unknown]
  - Drug ineffective [Unknown]
  - Abdominal pain [Unknown]
  - Hyperhidrosis [Unknown]
  - Sleep disorder [Unknown]
  - Increased appetite [Unknown]
  - Somnolence [Unknown]
  - Pain [Unknown]
  - Asthenia [Unknown]
